FAERS Safety Report 4320999-1 (Version None)
Quarter: 2004Q1

REPORT INFORMATION
  Report Type: 
  Country: None (occurrence: None)
  Receive Date: 20040318
  Receipt Date: 20040303
  Transmission Date: 20041129
  Serious: Yes (Life-Threatening)
  Sender: FDA-Public Use
  Company Number: 234162

PATIENT
  Age: 55 Year
  Sex: Female

DRUGS (6)
  1. INNOLET R CHU (INSULIN HUMAN) SOLUTION FOR INJECTION, 100IU/ML [Suspect]
     Indication: DIABETES MELLITUS
     Dosage: SUBCUTANEOUS
     Route: 058
     Dates: start: 20010101, end: 20031005
  2. URSO [Concomitant]
  3. PERSANTIN [Concomitant]
  4. KINEDAK (EPALRESTAT) [Concomitant]
  5. EPADEL (ETHYL ICOSAPENTATE) [Concomitant]
  6. ALLOPURINOL [Suspect]

REACTIONS (3)
  - BLOOD PRESSURE DECREASED [None]
  - BODY TEMPERATURE INCREASED [None]
  - DRUG ERUPTION [None]
